FAERS Safety Report 16400709 (Version 1)
Quarter: 2019Q2

REPORT INFORMATION
  Report Type: Report from Study
  Country: US (occurrence: US)
  Receive Date: 20190606
  Receipt Date: 20190606
  Transmission Date: 20190711
  Serious: Yes (Hospitalization, Other)
  Sender: FDA-Public Use
  Company Number: US-SHIRE-US201915196

PATIENT
  Age: 41 Year
  Sex: Female

DRUGS (1)
  1. GATTEX [Suspect]
     Active Substance: TEDUGLUTIDE\WATER
     Indication: SHORT-BOWEL SYNDROME
     Dosage: 2.89 MILLIGRAM, 1X/DAY:QD
     Route: 058
     Dates: start: 20190501, end: 20190506

REACTIONS (10)
  - Abdominal distension [Unknown]
  - Sepsis [Recovered/Resolved]
  - Chills [Unknown]
  - Gallbladder disorder [Recovered/Resolved]
  - Stoma complication [Not Recovered/Not Resolved]
  - Vomiting [Recovered/Resolved]
  - Nausea [Recovered/Resolved]
  - Stomal hernia [Recovered/Resolved]
  - Abdominal pain [Recovered/Resolved]
  - Hydronephrosis [Unknown]

NARRATIVE: CASE EVENT DATE: 20190430
